FAERS Safety Report 7732068-9 (Version None)
Quarter: 2011Q3

REPORT INFORMATION
  Report Type: 
  Country: None (occurrence: None)
  Receive Date: 20110906
  Receipt Date: 20110729
  Transmission Date: 20111222
  Serious: No
  Sender: FDA-Public Use
  Company Number: US-AMGEN-USASP2011038679

PATIENT
  Sex: Female

DRUGS (3)
  1. PROLIA [Suspect]
     Indication: OSTEOPOROSIS POSTMENOPAUSAL
     Dosage: UNK
     Dates: start: 20101101
  2. VITAMIN D [Concomitant]
     Dosage: UNK
  3. CALCIUM CARBONATE [Concomitant]

REACTIONS (3)
  - PAIN IN EXTREMITY [None]
  - WRIST FRACTURE [None]
  - FALL [None]
